FAERS Safety Report 26124144 (Version 1)
Quarter: 2025Q4

REPORT INFORMATION
  Report Type: Spontaneous
  Country: US (occurrence: US)
  Receive Date: 20251205
  Receipt Date: 20251205
  Transmission Date: 20260117
  Serious: Yes (Other)
  Sender: BAYER HEALTHCARE PHARMACEUTICALS INC.
  Company Number: US-BAYER-2025A155222

PATIENT
  Age: 58 Year
  Sex: Male

DRUGS (3)
  1. RIOCIGUAT [Suspect]
     Active Substance: RIOCIGUAT
     Indication: Pulmonary hypertension
  2. CLOZAPINE [Suspect]
     Active Substance: CLOZAPINE
     Indication: Paranoia
     Dosage: 300 MG, QD
  3. CLOZAPINE [Suspect]
     Active Substance: CLOZAPINE
     Indication: Aggression

REACTIONS (5)
  - Delirium [None]
  - Drug interaction [None]
  - Muscle spasms [None]
  - Abdominal distension [None]
  - Gait disturbance [None]
